FAERS Safety Report 22204982 (Version 1)
Quarter: 2023Q2

REPORT INFORMATION
  Report Type: Spontaneous
  Country: NL (occurrence: NL)
  Receive Date: 20230413
  Receipt Date: 20230413
  Transmission Date: 20230721
  Serious: Yes (Hospitalization, Other)
  Sender: FDA-Public Use
  Company Number: None

PATIENT
  Sex: Female
  Weight: 43.9 kg

DRUGS (9)
  1. PANTOPRAZOLE [Suspect]
     Active Substance: PANTOPRAZOLE
     Indication: Product used for unknown indication
     Dosage: 40 MILLIGRAM DAILY; TABLET MSR , BRAND NAME NOT SPECIFIED
     Dates: start: 20180101, end: 20230320
  2. METHOTREXATE [Suspect]
     Active Substance: METHOTREXATE
     Indication: Rheumatic disorder
     Dosage: 1X PER WEEK 6 PIECES , METHOTREXAAT , BRAND NAME NOT SPECIFIED
     Dates: start: 20180912, end: 20230318
  3. SPIOLTO RESPIMAT INHOP [Concomitant]
     Indication: Product used for unknown indication
     Dosage: 2.5/2.5 UG/DOSE (MICROGRAMS PER DOSE)  , TIOTROPIUM/OLODATEROL NEBISTER 2.5/2.5UG/DO /  2.5/2.5MCG/D
  4. ATORVASTATIN [Concomitant]
     Active Substance: ATORVASTATIN
     Indication: Product used for unknown indication
     Dosage: BRAND NAME NOT SPECIFIED
  5. LISINOPRIL [Concomitant]
     Active Substance: LISINOPRIL
     Indication: Product used for unknown indication
     Dosage: BRAND NAME NOT SPECIFIED
  6. HYDROCHLOROTHIAZIDE [Concomitant]
     Active Substance: HYDROCHLOROTHIAZIDE
     Indication: Product used for unknown indication
     Dosage: HYDROCHLOORTHIAZIDE , BRAND NAME NOT SPECIFIED
  7. FOLIC ACID [Concomitant]
     Active Substance: FOLIC ACID
     Indication: Product used for unknown indication
     Dosage: FOLIUMZUUR , BRAND NAME NOT SPECIFIED
  8. METOPROLOL SUCCINATE [Concomitant]
     Active Substance: METOPROLOL SUCCINATE
     Indication: Product used for unknown indication
     Dosage: BRAND NAME NOT SPECIFIED
  9. CLOPIDOGREL [Concomitant]
     Active Substance: CLOPIDOGREL BISULFATE
     Indication: Product used for unknown indication
     Dosage: BRAND NAME NOT SPECIFIED

REACTIONS (2)
  - Stomatitis [Recovering/Resolving]
  - Enteritis [Recovering/Resolving]
